FAERS Safety Report 7957952-2 (Version None)
Quarter: 2011Q4

REPORT INFORMATION
  Report Type: 
  Country: None (occurrence: None)
  Receive Date: 20111205
  Receipt Date: 20111128
  Transmission Date: 20120403
  Serious: Yes (Other)
  Sender: FDA-Public Use
  Company Number: CHPA2011US016925

PATIENT
  Sex: Female

DRUGS (2)
  1. BENEFIBER W/ WHEAT DEXTRIN [Suspect]
     Indication: BOWEL MOVEMENT IRREGULARITY
     Dosage: 3 TSP, DAILY
     Route: 048
     Dates: start: 20111128
  2. BENEFIBER W/ WHEAT DEXTRIN [Suspect]
     Dosage: 3 TSP, DAILY, ON AND OFF
     Route: 048

REACTIONS (9)
  - THERAPEUTIC RESPONSE UNEXPECTED [None]
  - CATARACT [None]
  - FREQUENT BOWEL MOVEMENTS [None]
  - DRY EYE [None]
  - FALL [None]
  - DIARRHOEA [None]
  - INCORRECT DOSE ADMINISTERED [None]
  - OFF LABEL USE [None]
  - CONTUSION [None]
